FAERS Safety Report 4757433-3 (Version None)
Quarter: 2005Q3

REPORT INFORMATION
  Report Type: 
  Country: None (occurrence: None)
  Receive Date: 20050831
  Receipt Date: 20050825
  Transmission Date: 20060218
  Serious: Yes (Other)
  Sender: FDA-Public Use
  Company Number: 200517544GDDC

PATIENT
  Age: 45 Year
  Sex: Male

DRUGS (2)
  1. DESMOPRESSIN [Suspect]
     Indication: ENURESIS
  2. CLOZARIL [Suspect]
     Indication: SCHIZOPHRENIA
     Route: 048
     Dates: start: 20040405

REACTIONS (2)
  - HYPONATRAEMIA [None]
  - SOMNOLENCE [None]
